FAERS Safety Report 18467966 (Version 1)
Quarter: 2020Q4

REPORT INFORMATION
  Report Type: Spontaneous
  Country: US (occurrence: US)
  Receive Date: 20201105
  Receipt Date: 20201105
  Transmission Date: 20210114
  Serious: Yes (Other)
  Sender: FDA-Public Use
  Company Number: US-PFIZER INC-2020426918

PATIENT
  Age: 64 Year
  Sex: Male
  Weight: 125.19 kg

DRUGS (1)
  1. LORBRENA [Suspect]
     Active Substance: LORLATINIB
     Indication: LUNG CARCINOMA CELL TYPE UNSPECIFIED STAGE IV
     Dosage: 100 MG, DAILY (100 MG, ONE TABLET BY MOUTH DAILY)
     Route: 048
     Dates: start: 2020

REACTIONS (4)
  - Diabetes mellitus [Unknown]
  - Movement disorder [Recovered/Resolved]
  - Peripheral swelling [Recovered/Resolved]
  - Fluid retention [Recovered/Resolved]

NARRATIVE: CASE EVENT DATE: 202007
